FAERS Safety Report 11540591 (Version 1)
Quarter: 2015Q3

REPORT INFORMATION
  Report Type: Spontaneous
  Country: US (occurrence: US)
  Receive Date: 20150923
  Receipt Date: 20150923
  Transmission Date: 20151125
  Serious: No
  Sender: FDA-Public Use
  Company Number: US-BEH-2015050570

PATIENT
  Sex: Male
  Weight: 88 kg

DRUGS (11)
  1. PRIVIGEN [Suspect]
     Active Substance: HUMAN IMMUNOGLOBULIN G
     Indication: IMMUNODEFICIENCY COMMON VARIABLE
     Route: 042
  2. FLONASE 0.05% NASAL SPRAY [Concomitant]
     Dosage: 1 DOSE AS DIRECTED
  3. VITAMIN D 1000 UN [Concomitant]
     Dosage: 1 DOSE AS DIRECTED
     Route: 048
  4. PRIVIGEN [Suspect]
     Active Substance: HUMAN IMMUNOGLOBULIN G
     Route: 042
  5. VITAMIN B12 [Concomitant]
     Active Substance: CYANOCOBALAMIN
     Dosage: 1 DOSE AS DIRECTED
  6. EPIPEN [Concomitant]
     Active Substance: EPINEPHRINE
     Indication: ANAPHYLACTIC REACTION
     Dosage: 0.3 MG PRN
  7. OMEPRAZOLE DR 20 MG [Concomitant]
     Dosage: 1 DOSE AS DIRECTED
     Route: 048
  8. INTRACORT [Concomitant]
     Dosage: 1 DOSE AS DIRECTED
  9. ACETAMINOPHEN. [Concomitant]
     Active Substance: ACETAMINOPHEN
     Dosage: 325 MG AS DIRECTED
     Route: 048
  10. DIPHENHYDRAMINE. [Concomitant]
     Active Substance: DIPHENHYDRAMINE
     Dosage: AS DIRECTED
  11. SODIUM CHLORIDE 0.9% [Concomitant]
     Active Substance: SODIUM CHLORIDE
     Dosage: AS DIRECTED

REACTIONS (1)
  - Sinusitis [Unknown]
